FAERS Safety Report 20912010 (Version 9)
Quarter: 2024Q4

REPORT INFORMATION
  Report Type: Spontaneous
  Country: US (occurrence: US)
  Receive Date: 20220603
  Receipt Date: 20241202
  Transmission Date: 20250114
  Serious: No
  Sender: PFIZER
  Company Number: US-PFIZER INC-202200342418

PATIENT
  Age: 81 Year
  Sex: Male

DRUGS (3)
  1. XELJANZ XR [Suspect]
     Active Substance: TOFACITINIB CITRATE
     Dosage: 11 MG, DAILY (1 TABLET DAILY. SWALLOW WHOLE, DO NOT SPLIT, CRUSH, OR CHEW)
     Route: 048
     Dates: start: 202202
  2. PFIZER-BIONTECH COVID-19 VACCINE [Concomitant]
     Active Substance: TOZINAMERAN
     Indication: COVID-19 immunisation
     Dosage: DOSE 5 (BOOSTER), SINGLE
  3. PFIZER-BIONTECH COVID-19 VACCINE [Concomitant]
     Active Substance: TOZINAMERAN
     Dosage: DOSE 4 (BOOSTER), SINGLE

REACTIONS (7)
  - Dizziness [Unknown]
  - Skin disorder [Unknown]
  - Amnesia [Unknown]
  - Fatigue [Unknown]
  - COVID-19 [Unknown]
  - Off label use [Unknown]
  - Wrong technique in product usage process [Unknown]

NARRATIVE: CASE EVENT DATE: 20220801
